FAERS Safety Report 21743971 (Version 1)
Quarter: 2022Q4

REPORT INFORMATION
  Report Type: Other
  Country: US (occurrence: None)
  Receive Date: 20221217
  Receipt Date: 20221217
  Transmission Date: 20230113
  Serious: Yes (Other)
  Sender: FDA-Public Use
  Company Number: US-ROCHE-3241733

PATIENT
  Age: 33 Year

DRUGS (1)
  1. OCREVUS [Suspect]
     Active Substance: OCRELIZUMAB
     Indication: Relapsing multiple sclerosis
     Dosage: SHE RECEIVED 2 HALF DOSE TREATMENT ON 11/NOV/2022 AND 28/NOV/2022 (AUTHORIZATION IS APPROVED FOR 600
     Route: 065
     Dates: start: 20221111

REACTIONS (1)
  - Herpes zoster [Unknown]
